FAERS Safety Report 9250866 (Version 1)
Quarter: 2013Q2

REPORT INFORMATION
  Report Type: Spontaneous
  Country: CH (occurrence: CH)
  Receive Date: 20130424
  Receipt Date: 20130424
  Transmission Date: 20140414
  Serious: Yes (Other)
  Sender: FDA-Public Use
  Company Number: PHHY2013CH036239

PATIENT
  Age: 19 Year
  Sex: Male

DRUGS (2)
  1. RITALIN [Suspect]
     Indication: ATTENTION DEFICIT/HYPERACTIVITY DISORDER
     Dosage: UNK UKN, UNK
     Route: 048
  2. RITALIN [Suspect]
     Dosage: 60 MG, UNK
     Route: 045

REACTIONS (10)
  - Toxicity to various agents [Recovered/Resolved]
  - Panic disorder [Unknown]
  - Psychomotor hyperactivity [Unknown]
  - Alcohol interaction [Unknown]
  - Drug abuse [Unknown]
  - Dyskinesia [Recovered/Resolved]
  - Anxiety [Unknown]
  - Restlessness [Unknown]
  - Tachycardia [Unknown]
  - Incorrect route of drug administration [Unknown]
